FAERS Safety Report 25828406 (Version 3)
Quarter: 2025Q4

REPORT INFORMATION
  Report Type: Report from Study
  Country: KR (occurrence: KR)
  Receive Date: 20250921
  Receipt Date: 20251205
  Transmission Date: 20260117
  Serious: Yes (Hospitalization, Other)
  Sender: ABBVIE
  Company Number: KR-ABBVIE-6468286

PATIENT
  Age: 72 Year
  Sex: Female
  Weight: 60 kg

DRUGS (40)
  1. VENCLEXTA [Suspect]
     Active Substance: VENETOCLAX
     Indication: Acute myeloid leukaemia
     Route: 048
     Dates: start: 20250623, end: 20250623
  2. VENCLEXTA [Suspect]
     Active Substance: VENETOCLAX
     Indication: Acute myeloid leukaemia
     Route: 048
     Dates: start: 20250625, end: 20250625
  3. VENCLEXTA [Suspect]
     Active Substance: VENETOCLAX
     Indication: Acute myeloid leukaemia
     Route: 048
     Dates: start: 20250624, end: 20250624
  4. VENCLEXTA [Suspect]
     Active Substance: VENETOCLAX
     Indication: Acute myeloid leukaemia
     Route: 048
     Dates: start: 20250626, end: 20250721
  5. VENCLEXTA [Suspect]
     Active Substance: VENETOCLAX
     Indication: Acute myeloid leukaemia
     Route: 048
     Dates: start: 20250812, end: 20250901
  6. Yuhan vitamin c [Concomitant]
     Indication: Nutritional supplementation
     Route: 048
     Dates: start: 20250623, end: 20250805
  7. Megace oral suspension [Concomitant]
     Indication: Decreased appetite
     Route: 048
     Dates: start: 20250812
  8. NYSTATIN [Concomitant]
     Active Substance: NYSTATIN
     Indication: Stomatitis
     Dosage: TIME INTERVAL: 0.33333333 DAYS: JT 100 ML
     Route: 048
     Dates: start: 20250904, end: 20250915
  9. Meckool [Concomitant]
     Indication: Vomiting
     Dosage: FREQUENCY TEXT: PRN?1 DOSAGE FORM
     Route: 042
     Dates: start: 20250702, end: 20250709
  10. K contin continus [Concomitant]
     Indication: Hypokalaemia
     Dosage: TIME INTERVAL: 0.33333333 DAYS: 1 DOSAGE FORM
     Route: 048
     Dates: start: 20250707, end: 20250805
  11. K contin continus [Concomitant]
     Indication: Hypokalaemia
     Dosage: TIME INTERVAL: 0.33333333 DAYS: 1 DOSAGE FORM
     Route: 048
     Dates: start: 20250929
  12. Lexacure [Concomitant]
     Indication: Anxiety
     Route: 048
     Dates: start: 20250708, end: 20250805
  13. SCD Magnesium oxide [Concomitant]
     Indication: Constipation
     Route: 048
     Dates: start: 20250716, end: 20250716
  14. Sinil folic acid [Concomitant]
     Indication: Nutritional supplementation
     Route: 048
     Dates: start: 20250623, end: 20250805
  15. Sinil pyridoxine [Concomitant]
     Indication: Nervous system disorder prophylaxis
     Route: 048
     Dates: start: 20250623, end: 20250805
  16. LENOGRASTIM [Concomitant]
     Active Substance: LENOGRASTIM
     Indication: Neutropenia
     Dosage: UNIT DOSE: 1VIAL, 250MCG, FREQUENCY TEXT: PRN
     Route: 042
     Dates: start: 20250712
  17. CRESTOR [Concomitant]
     Active Substance: ROSUVASTATIN CALCIUM
     Indication: Hyperlipidaemia
     Route: 048
  18. SMOFLIPID [Concomitant]
     Active Substance: FISH OIL\MEDIUM-CHAIN TRIGLYCERIDES\OLIVE OIL\SOYBEAN OIL
     Indication: Nutritional supplementation
     Dosage: 20% INJ 500ML, FREQUENCY TEXT: EVERY OTHER DAY
     Route: 042
     Dates: start: 20250702, end: 20250706
  19. MAXIPIME [Concomitant]
     Active Substance: CEFEPIME HYDROCHLORIDE
     Indication: C-reactive protein increased
     Dosage: TIME INTERVAL: 0.33333333 DAYS: UNIT DOSE: 2 VIAL
     Route: 042
     Dates: start: 20250707, end: 20250725
  20. LEVOFLOXACIN [Concomitant]
     Active Substance: LEVOFLOXACIN
     Indication: Infection prophylaxis
     Route: 048
     Dates: start: 20250623, end: 20250904
  21. NOXAFIL [Concomitant]
     Active Substance: POSACONAZOLE
     Indication: Infection prophylaxis
     Dosage: 100 MG?1 DOSAGE FORM
     Route: 048
     Dates: start: 20250623, end: 20250805
  22. SYNTHROID [Concomitant]
     Active Substance: LEVOTHYROXINE SODIUM
     Indication: Hypothyroidism
     Route: 048
  23. Zoylex [Concomitant]
     Indication: Infection prophylaxis
     Route: 048
     Dates: start: 20250801, end: 20250805
  24. Dulackhan easy [Concomitant]
     Indication: Constipation
     Dosage: TIME INTERVAL: 0.33333333 DAYS
     Route: 048
     Dates: start: 20250721, end: 20250725
  25. Debikin [Concomitant]
     Indication: Acute myeloid leukaemia
     Route: 042
     Dates: start: 20250623, end: 20250627
  26. Debikin [Concomitant]
     Indication: Acute myeloid leukaemia
     Route: 042
     Dates: start: 20250812, end: 20250819
  27. Peniramin [Concomitant]
     Indication: Transfusion
     Dosage: FREQUENCY TEXT: PRN
     Route: 042
     Dates: start: 20250805, end: 20250903
  28. Peniramin [Concomitant]
     Indication: Transfusion
     Dosage: FREQUENCY TEXT: PRN
     Route: 042
     Dates: start: 20250703, end: 20250802
  29. TRANEXAMIC ACID [Concomitant]
     Active Substance: TRANEXAMIC ACID
     Indication: Haemorrhage prophylaxis
     Dosage: 500MG/5ML
     Route: 042
     Dates: start: 20250709, end: 20250729
  30. Ondant [Concomitant]
     Indication: Nausea
     Route: 042
     Dates: start: 20250709, end: 20250709
  31. ALLOPURINOL [Concomitant]
     Active Substance: ALLOPURINOL
     Indication: Prophylaxis
     Route: 048
     Dates: start: 20250623, end: 20250804
  32. VITAMINS [Concomitant]
     Active Substance: VITAMINS
     Indication: Nutritional supplementation
     Dosage: UNIT DOSE:1 VIAL
     Route: 042
     Dates: start: 20250910, end: 20251006
  33. M-cobal [Concomitant]
     Indication: Nervous system disorder prophylaxis
     Dosage: 500MCG
     Route: 048
     Dates: start: 20250623, end: 20250805
  34. ACETAMINOPHEN [Concomitant]
     Active Substance: ACETAMINOPHEN
     Indication: Headache
     Dosage: FREQUENCY TEXT: PRN, 8 HOURS
     Route: 048
     Dates: start: 20250701, end: 20250701
  35. FREAMINE III NOS [Concomitant]
     Active Substance: AMINO ACIDS
     Indication: Nutritional supplementation
     Dosage: 10% INJ 500ML (BAG)
     Route: 042
     Dates: start: 20250904
  36. FREAMINE III NOS [Concomitant]
     Active Substance: AMINO ACIDS
     Indication: Nutritional supplementation
     Dosage: 10% INJ 500ML (BAG), FREQUENCY TEXT: PRN
     Route: 042
     Dates: start: 20250729, end: 20250801
  37. FREAMINE III NOS [Concomitant]
     Active Substance: AMINO ACIDS
     Indication: Nutritional supplementation
     Dosage: 10% INJ 500ML (BAG), FREQUENCY TEXT: EVERY OTHER DAY
     Route: 042
     Dates: start: 20250703, end: 20250707
  38. Lopain [Concomitant]
     Indication: Diarrhoea
     Dosage: TIME INTERVAL: 0.33333333 DAYS
     Route: 048
     Dates: start: 20250704, end: 20250704
  39. Zanapam [Concomitant]
     Indication: Anxiety
     Dosage: FREQUENCY TEXT: HORA SOMNI,  0.125MG
     Route: 048
     Dates: start: 20250708, end: 20250805
  40. POTASSIUM CHLORIDE [Concomitant]
     Active Substance: POTASSIUM CHLORIDE
     Indication: Hypokalaemia
     Dosage: CHOONGWAE, FREQUENCY TEXT: PRN
     Route: 042
     Dates: start: 20250704, end: 20250717

REACTIONS (3)
  - Bacteraemia [Not Recovered/Not Resolved]
  - Pneumonia fungal [Not Recovered/Not Resolved]
  - Retinal haemorrhage [Not Recovered/Not Resolved]

NARRATIVE: CASE EVENT DATE: 20250903
